FAERS Safety Report 6453756-0 (Version None)
Quarter: 2009Q4

REPORT INFORMATION
  Report Type: 
  Country: None (occurrence: None)
  Receive Date: 20091124
  Receipt Date: 20091026
  Transmission Date: 20100525
  Serious: No
  Sender: FDA-Public Use
  Company Number: US-BRISTOL-MYERS SQUIBB COMPANY-14830988

PATIENT
  Age: 56 Year
  Sex: Female

DRUGS (1)
  1. ONGLYZA [Suspect]
     Indication: TYPE 2 DIABETES MELLITUS
     Dates: start: 20090925, end: 20090101

REACTIONS (1)
  - URINARY TRACT INFECTION [None]
